FAERS Safety Report 8831089 (Version 1)
Quarter: 2012Q4

REPORT INFORMATION
  Report Type: 
  Country: US (occurrence: US)
  Receive Date: 20121009
  Receipt Date: 20121009
  Transmission Date: 20130627
  Serious: Yes (Hospitalization)
  Sender: FDA-Public Use
  Company Number: PHEH2012US019352

PATIENT
  Sex: Male

DRUGS (2)
  1. TOBI [Suspect]
     Indication: BRONCHIECTASIS
     Dosage: 300 mg, BID
     Dates: start: 20120210
  2. TOBI [Suspect]
     Dosage: UNK UKN, UNK

REACTIONS (2)
  - Lung infection [Unknown]
  - Tinnitus [Unknown]
